FAERS Safety Report 4857099-8 (Version None)
Quarter: 2005Q4

REPORT INFORMATION
  Report Type: 
  Country: None (occurrence: None)
  Receive Date: 20051219
  Receipt Date: 20041228
  Transmission Date: 20060501
  Serious: No
  Sender: FDA-Public Use
  Company Number: US-GLAXOSMITHKLINE-A0538656A

PATIENT
  Age: 72 Year
  Sex: Male

DRUGS (3)
  1. EQUATE NTS 21MG [Suspect]
  2. EQUATE NTS 14MG [Suspect]
  3. EQUATE NTS 7MG [Suspect]
     Dates: end: 20041220

REACTIONS (1)
  - NICOTINE DEPENDENCE [None]
